FAERS Safety Report 6669848-7 (Version None)
Quarter: 2010Q2

REPORT INFORMATION
  Report Type: 
  Country: None (occurrence: None)
  Receive Date: 20100406
  Receipt Date: 20100119
  Transmission Date: 20101027
  Serious: No
  Sender: FDA-Public Use
  Company Number: US-ALLERGAN-0909655US

PATIENT
  Age: 54 Year
  Sex: Female
  Weight: 70.295 kg

DRUGS (2)
  1. LATISSE [Suspect]
     Indication: DRUG USE FOR UNKNOWN INDICATION
     Dosage: UNK
     Dates: start: 20090501, end: 20090701
  2. LATISSE [Suspect]
     Dosage: UNK
     Dates: start: 20090801

REACTIONS (2)
  - INAPPROPRIATE SCHEDULE OF DRUG ADMINISTRATION [None]
  - MADAROSIS [None]
